FAERS Safety Report 4994784-1 (Version None)
Quarter: 2006Q1

REPORT INFORMATION
  Report Type: 
  Country: None (occurrence: None)
  Receive Date: 20060314
  Receipt Date: 20051212
  Transmission Date: 20060701
  Serious: Yes (Hospitalization)
  Sender: FDA-Public Use
  Company Number: 200514961BCC

PATIENT
  Age: 77 Year
  Sex: Female
  Weight: 54.4316 kg

DRUGS (3)
  1. ALEVE [Suspect]
     Indication: ARTHRALGIA
     Dosage: ORAL
     Route: 048
     Dates: start: 20051201, end: 20051207
  2. PLAVIX [Concomitant]
  3. HIGH BLOOD PRESSURE MEDICATION [Concomitant]

REACTIONS (2)
  - GASTRIC HAEMORRHAGE [None]
  - HAEMATEMESIS [None]
